FAERS Safety Report 19382265 (Version 1)
Quarter: 2021Q2

REPORT INFORMATION
  Report Type: Spontaneous
  Country: US (occurrence: US)
  Receive Date: 20210607
  Receipt Date: 20210607
  Transmission Date: 20210717
  Serious: No
  Sender: FDA-Public Use
  Company Number: US-EMD SERONO-9240067

PATIENT
  Age: 63 Year
  Sex: Female

DRUGS (1)
  1. REBIF [Suspect]
     Active Substance: INTERFERON BETA-1A
     Indication: PRODUCT USED FOR UNKNOWN INDICATION
     Dosage: REBIF PREFILLED SYRINGE
     Dates: start: 20131231

REACTIONS (7)
  - Abdominal pain [Unknown]
  - Fatigue [Unknown]
  - Feeling abnormal [Unknown]
  - Disease progression [Unknown]
  - Eye disorder [Unknown]
  - Pain in extremity [Unknown]
  - Injection site erythema [Unknown]

NARRATIVE: CASE EVENT DATE: 2021
